FAERS Safety Report 14647067 (Version 2)
Quarter: 2018Q1

REPORT INFORMATION
  Report Type: Spontaneous
  Country: US (occurrence: US)
  Receive Date: 20180316
  Receipt Date: 20180319
  Transmission Date: 20180509
  Serious: No
  Sender: FDA-Public Use
  Company Number: US-JNJFOC-20180228373

PATIENT
  Age: 47 Year
  Sex: Male
  Weight: 74.84 kg

DRUGS (2)
  1. MENS ROGAINE EXTRA STRENGTH [Suspect]
     Active Substance: MINOXIDIL
     Indication: ALOPECIA
     Dosage: LESS THAN 1 ML
     Route: 061
     Dates: start: 201712, end: 201801
  2. MENS ROGAINE EXTRA STRENGTH [Suspect]
     Active Substance: MINOXIDIL
     Indication: ALOPECIA
     Route: 061
     Dates: start: 201801

REACTIONS (3)
  - Product administered at inappropriate site [Unknown]
  - Underdose [Unknown]
  - Seborrhoea [Recovered/Resolved]
